FAERS Safety Report 7925967-6 (Version None)
Quarter: 2011Q4

REPORT INFORMATION
  Report Type: 
  Country: None (occurrence: None)
  Receive Date: 20111118
  Receipt Date: 20110415
  Transmission Date: 20120403
  Serious: No
  Sender: FDA-Public Use
  Company Number: US-AMGEN-USASP2011020151

PATIENT
  Age: 5 Year
  Sex: Female
  Weight: 27.211 kg

DRUGS (2)
  1. ENBREL [Suspect]
     Indication: JUVENILE ARTHRITIS
     Dosage: 2.5 MG, 2 TIMES/WK
     Dates: start: 20080101
  2. METHOTREXATE [Concomitant]
     Dosage: .4 MG, QWK

REACTIONS (4)
  - PSYCHOMOTOR HYPERACTIVITY [None]
  - HYPOPHAGIA [None]
  - HEADACHE [None]
  - VOMITING [None]
